FAERS Safety Report 12238234 (Version 1)
Quarter: 2016Q2

REPORT INFORMATION
  Report Type: Spontaneous
  Country: US (occurrence: US)
  Receive Date: 20160405
  Receipt Date: 20160405
  Transmission Date: 20160815
  Serious: No
  Sender: FDA-Public Use
  Company Number: US-WATSON-2015-16309

PATIENT
  Age: 33 Year
  Sex: Female

DRUGS (1)
  1. LIDOCAINE (WATSON LABORATORIES) [Suspect]
     Active Substance: LIDOCAINE
     Indication: LOCAL ANAESTHESIA
     Dosage: UNK UNK, SINGLE
     Route: 061
     Dates: start: 20150730, end: 20150730

REACTIONS (2)
  - Pain [Unknown]
  - Drug ineffective [Unknown]

NARRATIVE: CASE EVENT DATE: 20150730
